FAERS Safety Report 18646870 (Version 2)
Quarter: 2021Q1

REPORT INFORMATION
  Report Type: Other
  Country: US (occurrence: US)
  Receive Date: 20201221
  Receipt Date: 20210320
  Transmission Date: 20210419
  Serious: No
  Sender: FDA-Public Use
  Company Number: US-ACORDA-ACO_166970_2020

PATIENT
  Age: 83 Year
  Sex: Female

DRUGS (5)
  1. CARBIDOPA AND LEVODOPA [Concomitant]
     Active Substance: CARBIDOPA\LEVODOPA
     Dosage: 50/200 MG, 2 PILLS AT BEDTIME
     Route: 065
  2. CARBIDOPA AND LEVODOPA [Concomitant]
     Active Substance: CARBIDOPA\LEVODOPA
     Indication: PRODUCT USED FOR UNKNOWN INDICATION
     Dosage: 25/100 MG, 2 PILLS EVERY 2 HOURS
     Route: 060
  3. INBRIJA [Suspect]
     Active Substance: LEVODOPA
     Indication: ON AND OFF PHENOMENON
     Dosage: 42 MILLIGRAM ? INHALE (1 CAP) EVERY 8 HOURS AS NEED
  4. CARBIDOPA AND LEVODOPA [Concomitant]
     Active Substance: CARBIDOPA\LEVODOPA
     Dosage: 25/100 2 PO X 6
     Route: 048
  5. INBRIJA [Suspect]
     Active Substance: LEVODOPA
     Indication: PARKINSON^S DISEASE
     Dosage: 84 MILLIGRAM, PRN (NOT TO EXCEED 5 DOSES A DAY)
     Dates: start: 20201001

REACTIONS (10)
  - Bronchial disorder [Unknown]
  - Product communication issue [Unknown]
  - Device difficult to use [Unknown]
  - Device occlusion [Unknown]
  - Wrong technique in product usage process [Unknown]
  - Prescribed underdose [Unknown]
  - Device issue [Unknown]
  - Rhinorrhoea [Unknown]
  - Sputum discoloured [Not Recovered/Not Resolved]
  - Nasal discharge discolouration [Not Recovered/Not Resolved]

NARRATIVE: CASE EVENT DATE: 202011
